FAERS Safety Report 4599958-X (Version None)
Quarter: 2005Q1

REPORT INFORMATION
  Report Type: 
  Country: None (occurrence: None)
  Receive Date: 20050307
  Receipt Date: 20050223
  Transmission Date: 20050727
  Serious: Yes (Other)
  Sender: FDA-Public Use
  Company Number: US-MERCK-0502USA03233

PATIENT
  Age: 66 Year
  Sex: Female

DRUGS (3)
  1. COSOPT [Suspect]
     Indication: GLAUCOMA
     Route: 047
  2. LOTEMAX [Concomitant]
     Route: 065
  3. LUMIGAN [Concomitant]
     Route: 065

REACTIONS (4)
  - CORNEAL PERFORATION [None]
  - CORNEAL TRANSPLANT [None]
  - FOREIGN BODY TRAUMA [None]
  - MEDICAL DEVICE COMPLICATION [None]
